FAERS Safety Report 4482924-2 (Version None)
Quarter: 2004Q4

REPORT INFORMATION
  Report Type: 
  Country: None (occurrence: None)
  Receive Date: 20041022
  Receipt Date: 20041007
  Transmission Date: 20050328
  Serious: Yes (Life-Threatening)
  Sender: FDA-Public Use
  Company Number: US-MERCK-0410USA01093

PATIENT
  Age: 52 Year
  Sex: Male

DRUGS (9)
  1. VIOXX [Suspect]
     Indication: ARTHRITIS
     Route: 048
     Dates: start: 20010905, end: 20020101
  2. VIOXX [Suspect]
     Route: 048
     Dates: start: 20020212, end: 20040101
  3. ZONEGRAN [Concomitant]
     Route: 065
  4. NEURONTIN [Concomitant]
     Route: 065
  5. LEVOXYL [Concomitant]
     Route: 065
  6. LIPITOR [Concomitant]
     Route: 065
  7. PROZAC [Concomitant]
     Route: 065
  8. SKELAXIN [Concomitant]
     Route: 065
  9. KADIAN [Concomitant]
     Route: 065

REACTIONS (1)
  - NEPHROLITHIASIS [None]
